FAERS Safety Report 11413512 (Version 2)
Quarter: 2015Q3

REPORT INFORMATION
  Report Type: Spontaneous
  Country: US (occurrence: US)
  Receive Date: 20150821
  Receipt Date: 20150903
  Transmission Date: 20151125
  Serious: No
  Sender: FDA-Public Use
  Company Number: US-ELI_LILLY_AND_COMPANY-US201211001010

PATIENT
  Age: 67 Year
  Sex: Female

DRUGS (7)
  1. NOVOLIN [Concomitant]
     Active Substance: INSULIN HUMAN
  2. HUMULIN 70/30 [Suspect]
     Active Substance: INSULIN HUMAN
     Indication: DIABETES MELLITUS
  3. HUMALOG MIX75/25 [Suspect]
     Active Substance: INSULIN LISPRO
     Indication: DIABETES MELLITUS
     Dosage: UNK
     Dates: end: 201207
  4. WARFARIN [Concomitant]
     Active Substance: WARFARIN
  5. HUMALOG MIX75/25 [Suspect]
     Active Substance: INSULIN LISPRO
     Indication: DIABETES MELLITUS
  6. HUMULIN 70/30 [Suspect]
     Active Substance: INSULIN HUMAN
     Indication: DIABETES MELLITUS
  7. HUMULIN R [Suspect]
     Active Substance: INSULIN HUMAN

REACTIONS (8)
  - Blood cholesterol abnormal [Unknown]
  - Memory impairment [Unknown]
  - Glycosylated haemoglobin increased [Unknown]
  - Intentional product misuse [Unknown]
  - Diabetes mellitus inadequate control [Not Recovered/Not Resolved]
  - Drug ineffective [Recovered/Resolved]
  - General physical health deterioration [Unknown]
  - Blood glucose increased [Recovering/Resolving]
